FAERS Safety Report 9069766 (Version 1)
Quarter: 2013Q1

REPORT INFORMATION
  Report Type: Report from Study
  Country: US (occurrence: US)
  Receive Date: 20130131
  Receipt Date: 20130131
  Transmission Date: 20140127
  Serious: No
  Sender: FDA-Public Use
  Company Number: US-ABBOTT-12P-163-1000379-00

PATIENT
  Age: 64 Year
  Sex: Female

DRUGS (8)
  1. HUMIRA [Suspect]
     Indication: PSORIATIC ARTHROPATHY
     Dates: start: 20120729
  2. CELEBREX [Concomitant]
     Indication: ARTHRALGIA
  3. BENICAR HCT [Concomitant]
     Indication: HYPERTENSION
  4. CYMBALTA [Concomitant]
     Indication: FIBROMYALGIA
  5. NORTRIPTYLINE [Concomitant]
     Indication: FIBROMYALGIA
  6. CYCLOBENZAPRINE [Concomitant]
     Indication: FIBROMYALGIA
  7. OMEPRAZOLE [Concomitant]
     Indication: GASTRIC DISORDER
  8. ALLEGRA [Concomitant]
     Indication: HYPERSENSITIVITY

REACTIONS (3)
  - Injection site bruising [Recovering/Resolving]
  - Bronchitis [Recovering/Resolving]
  - Bronchitis [Unknown]
